FAERS Safety Report 25037792 (Version 1)
Quarter: 2025Q1

REPORT INFORMATION
  Report Type: Other
  Country: US (occurrence: US)
  Receive Date: 20250304
  Receipt Date: 20250304
  Transmission Date: 20250409
  Serious: Yes (Death, Hospitalization, Other)
  Sender: AVONDALE PHARMACEUTICALS
  Company Number: US-Avondale Pharmaceuticals, LLC-2172199

PATIENT
  Age: 80 Year
  Sex: Male

DRUGS (1)
  1. NIACOR [Suspect]
     Active Substance: NIACIN
     Indication: Product used for unknown indication

REACTIONS (1)
  - Acute hepatic failure [Fatal]
